FAERS Safety Report 21768008 (Version 3)
Quarter: 2023Q1

REPORT INFORMATION
  Report Type: Spontaneous
  Country: JP (occurrence: JP)
  Receive Date: 20221222
  Receipt Date: 20230129
  Transmission Date: 20230418
  Serious: Yes (Life-Threatening, Hospitalization, Congenital Anomaly, Other)
  Sender: FDA-Public Use
  Company Number: JP-BAXTER-2022BAX021062

PATIENT
  Sex: Male
  Weight: .841 kg

DRUGS (3)
  1. BLEOMYCIN [Suspect]
     Active Substance: BLEOMYCIN SULFATE
     Indication: Maternal cancer in pregnancy
     Dosage: INJECTION; 16 MILLIGRAM, QD; MOTHER STARTED WITH CHEMOTHERAPY AT GESTATIONAL WEEK
     Route: 064
     Dates: start: 20220422, end: 20220422
  2. DOXORUBICIN [Suspect]
     Active Substance: DOXORUBICIN
     Indication: Maternal cancer in pregnancy
     Dosage: INJECTION; 40MG, 12 TIMES; MOTHER STARTED WITH CHEMOTHERAPY AT GESTATIONAL WEEK
     Route: 064
     Dates: start: 20220422, end: 20220927
  3. VINBLASTINE SULFATE [Suspect]
     Active Substance: VINBLASTINE SULFATE
     Indication: Maternal cancer in pregnancy
     Dosage: INJECTION; 9.5 MG, 12 TIMES; MOTHER STARTED WITH CHEMOTHERAPY AT GESTATIONAL WEEK
     Route: 064
     Dates: start: 20220422, end: 20220927

REACTIONS (8)
  - Ventricular septal defect [Unknown]
  - Patent ductus arteriosus [Unknown]
  - Cleft lip and palate [Unknown]
  - Lissencephaly [Unknown]
  - Low birth weight baby [Unknown]
  - Neonatal asphyxia [Unknown]
  - Trisomy 13 [Unknown]
  - Maternal exposure during pregnancy [Unknown]

NARRATIVE: CASE EVENT DATE: 20220101
